FAERS Safety Report 14844466 (Version 2)
Quarter: 2018Q2

REPORT INFORMATION
  Report Type: Spontaneous
  Country: US (occurrence: US)
  Receive Date: 20180503
  Receipt Date: 20180514
  Transmission Date: 20180711
  Serious: No
  Sender: FDA-Public Use
  Company Number: PHEH2018US016679

PATIENT
  Age: 69 Year
  Sex: Male
  Weight: 86.7 kg

DRUGS (2)
  1. ENTRESTO [Suspect]
     Active Substance: SACUBITRIL\VALSARTAN
     Indication: CARDIOMYOPATHY
     Dosage: 1 DF, QD
     Route: 048
     Dates: start: 20170907
  2. ATORVASTATIN [Concomitant]
     Active Substance: ATORVASTATIN
     Indication: PRODUCT USED FOR UNKNOWN INDICATION
     Dosage: 10 MG, QD
     Route: 065

REACTIONS (6)
  - Blood bilirubin increased [Recovering/Resolving]
  - Product use in unapproved indication [Unknown]
  - Cholelithiasis [Recovering/Resolving]
  - Bilirubin conjugated increased [Recovering/Resolving]
  - Blood alkaline phosphatase increased [Unknown]
  - Jaundice [Unknown]

NARRATIVE: CASE EVENT DATE: 20170907
